FAERS Safety Report 6132219-6 (Version None)
Quarter: 2009Q1

REPORT INFORMATION
  Report Type: 
  Country: None (occurrence: None)
  Receive Date: 20090320
  Receipt Date: 20080122
  Transmission Date: 20090719
  Serious: No
  Sender: FDA-Public Use
  Company Number: E-08-004

PATIENT
  Age: 43 Year
  Sex: Female
  Weight: 69.8539 kg

DRUGS (1)
  1. HYDROCODONE BITARTRATE + ACETAMINOPHEN [Suspect]
     Indication: PAIN
     Dosage: 3 TSP, 4-6 HOURS, MOUTH
     Route: 048

REACTIONS (1)
  - DRUG INEFFECTIVE [None]
